FAERS Safety Report 12355278 (Version 4)
Quarter: 2016Q3

REPORT INFORMATION
  Report Type: Spontaneous
  Country: US (occurrence: US)
  Receive Date: 20160511
  Receipt Date: 20160715
  Transmission Date: 20161109
  Serious: Yes (Hospitalization)
  Sender: FDA-Public Use
  Company Number: PHEH2016US011512

PATIENT
  Age: 37 Year
  Sex: Male
  Weight: 85.26 kg

DRUGS (3)
  1. TASIGNA [Suspect]
     Active Substance: NILOTINIB
     Indication: CHRONIC MYELOID LEUKAEMIA
     Dosage: 400 MG, BID
     Route: 048
  2. DASATINIB [Suspect]
     Active Substance: DASATINIB
     Indication: PRODUCT USED FOR UNKNOWN INDICATION
     Dosage: 100 MG, QD
     Route: 048
     Dates: start: 201405
  3. PRILOSEC [Concomitant]
     Active Substance: OMEPRAZOLE MAGNESIUM
     Indication: PRODUCT USED FOR UNKNOWN INDICATION
     Dosage: 40 MG, QD
     Route: 048

REACTIONS (25)
  - Appendicitis [Unknown]
  - Arthralgia [Unknown]
  - Discomfort [Unknown]
  - Malaise [Unknown]
  - Leukocytosis [Recovered/Resolved]
  - Arthritis [Recovering/Resolving]
  - Spinal column stenosis [Unknown]
  - Dyspepsia [Unknown]
  - Abdominal pain [Unknown]
  - Movement disorder [Unknown]
  - Myalgia [Not Recovered/Not Resolved]
  - Pain [Unknown]
  - Intervertebral disc protrusion [Unknown]
  - Hypersomnia [Unknown]
  - Anxiety [Unknown]
  - Fatigue [Unknown]
  - Musculoskeletal stiffness [Unknown]
  - Abdominal pain upper [Not Recovered/Not Resolved]
  - Blood pressure increased [Unknown]
  - Blood pressure decreased [Unknown]
  - Decreased appetite [Unknown]
  - Asthenia [Unknown]
  - Hypertrophy [Unknown]
  - Bone pain [Unknown]
  - Pain in extremity [Unknown]

NARRATIVE: CASE EVENT DATE: 20140923
